FAERS Safety Report 8033217 (Version 2)
Quarter: 2014Q2

REPORT INFORMATION
  Report Type: Report from Study
  Country: US (occurrence: US)
  Receive Date: 20110713
  Receipt Date: 20140422
  Transmission Date: 20141212
  Serious: Yes (Hospitalization, Other)
  Sender: FDA-Public Use
  Company Number: US-GLAXOSMITHKLINE-A0799941B

PATIENT
  Age: 68 Year
  Sex: Female
  Weight: 105 kg

DRUGS (3)
  1. LAPATINIB [Suspect]
     Indication: BREAST CANCER
     Dosage: 1500MG PER DAY
     Route: 048
     Dates: start: 20090717, end: 20090831
  2. PACLITAXEL [Suspect]
     Indication: BREAST CANCER
     Dosage: 80MGM2 WEEKLY
     Route: 042
     Dates: start: 20090717, end: 20090821
  3. DIURETIC [Concomitant]

REACTIONS (2)
  - Pneumonia [Recovering/Resolving]
  - Anaemia [Recovered/Resolved]
